FAERS Safety Report 6266897-8 (Version None)
Quarter: 2009Q3

REPORT INFORMATION
  Report Type: 
  Country: None (occurrence: None)
  Receive Date: 20090714
  Receipt Date: 20090706
  Transmission Date: 20100115
  Serious: Yes (Hospitalization, Other)
  Sender: FDA-Public Use
  Company Number: PHHY2009BR27787

PATIENT
  Sex: Female

DRUGS (2)
  1. FORASEQ [Suspect]
     Indication: ASTHMA
     Dosage: 12/ 400 MCG; 2 OR 3 TIMES PER DAY
  2. BAMIFIX [Concomitant]
     Indication: ASTHMA
     Dosage: 600 MG, QD
     Route: 048

REACTIONS (8)
  - ASTHMA [None]
  - BREAST CANCER [None]
  - BREAST MASS [None]
  - HEADACHE [None]
  - HYPERTENSION [None]
  - MALIGNANT BREAST LUMP REMOVAL [None]
  - NECK PAIN [None]
  - RETCHING [None]
